FAERS Safety Report 11053492 (Version 1)
Quarter: 2015Q2

REPORT INFORMATION
  Report Type: Spontaneous
  Country: FR (occurrence: FR)
  Receive Date: 20150421
  Receipt Date: 20150421
  Transmission Date: 20150821
  Serious: Yes (Hospitalization)
  Sender: FDA-Public Use
  Company Number: FR-ELI_LILLY_AND_COMPANY-FR201504002864

PATIENT
  Age: 61 Year
  Sex: Female
  Weight: 52 kg

DRUGS (4)
  1. VINORELBINE [Suspect]
     Active Substance: VINORELBINE\VINORELBINE TARTRATE
     Indication: LUNG ADENOCARCINOMA STAGE 0
     Dosage: 45 MG, OTHER
     Route: 042
     Dates: start: 20140917, end: 20140917
  2. GEMZAR [Suspect]
     Active Substance: GEMCITABINE HYDROCHLORIDE
     Indication: LUNG ADENOCARCINOMA STAGE 0
     Dosage: 1500 MG, OTHER
     Route: 042
     Dates: start: 20140917, end: 20140917
  3. OXALIPLATINE [Suspect]
     Active Substance: OXALIPLATIN
     Indication: LUNG ADENOCARCINOMA STAGE 0
     Dosage: 150 MG, OTHER
     Route: 042
     Dates: start: 20140917, end: 20140917
  4. NEULASTA [Suspect]
     Active Substance: PEGFILGRASTIM
     Indication: LUNG ADENOCARCINOMA STAGE 0
     Dosage: 6 MG, OTHER
     Route: 058
     Dates: start: 20140917, end: 20140917

REACTIONS (7)
  - Chills [Unknown]
  - Tumour necrosis [Unknown]
  - Hypotension [Unknown]
  - Inflammation [Unknown]
  - Pyrexia [Unknown]
  - Cholestasis [Recovered/Resolved]
  - Off label use [Unknown]

NARRATIVE: CASE EVENT DATE: 20140927
